FAERS Safety Report 17312805 (Version 1)
Quarter: 2020Q1

REPORT INFORMATION
  Report Type: Spontaneous
  Country: PL (occurrence: PL)
  Receive Date: 20200123
  Receipt Date: 20200123
  Transmission Date: 20200409
  Serious: Yes (Hospitalization)
  Sender: FDA-Public Use
  Company Number: PL-AUROBINDO-AUR-APL-2020-003339

PATIENT
  Age: 25 Year
  Sex: Male

DRUGS (5)
  1. CEFTRIAXONE. [Suspect]
     Active Substance: CEFTRIAXONE
     Indication: TRICHOPHYTOSIS
     Dosage: 2 GRAM, ONCE A DAY
     Route: 042
     Dates: start: 200910
  2. VANCOMYCIN [Suspect]
     Active Substance: VANCOMYCIN
     Indication: TRICHOPHYTOSIS
     Dosage: UNK, (STARTED 4 DAYS PRIOR TO ERYTHEMA NODOSUM)
     Route: 065
     Dates: start: 200910
  3. AMOXICILLIN+CLAVULANIC ACID [Suspect]
     Active Substance: AMOXICILLIN\CLAVULANIC ACID
     Indication: TRICHOPHYTOSIS
     Dosage: UNK, STARTED FOR 8 DAYS
     Route: 065
     Dates: start: 200910
  4. TERBINAFINE. [Suspect]
     Active Substance: TERBINAFINE
     Indication: TRICHOPHYTOSIS
     Dosage: 250 MILLIGRAM, ONCE A DAY
     Route: 048
     Dates: start: 200910
  5. FLUCONAZOLE. [Concomitant]
     Active Substance: FLUCONAZOLE
     Indication: TRICHOPHYTOSIS
     Dosage: UNK
     Route: 042
     Dates: start: 200910

REACTIONS (4)
  - Arthritis [Recovering/Resolving]
  - Dermatitis [Recovering/Resolving]
  - Erythema nodosum [Recovering/Resolving]
  - Abdominal pain [Recovering/Resolving]

NARRATIVE: CASE EVENT DATE: 200910
